FAERS Safety Report 8063807-8 (Version None)
Quarter: 2012Q1

REPORT INFORMATION
  Report Type: 
  Country: None (occurrence: None)
  Receive Date: 20120123
  Receipt Date: 20120112
  Transmission Date: 20120608
  Serious: Yes (Other)
  Sender: FDA-Public Use
  Company Number: CH-MERCK-1201USA02368

PATIENT
  Age: 45 Year
  Sex: Female

DRUGS (4)
  1. PRIMAXIN [Suspect]
     Route: 042
  2. VANCOMYCIN [Suspect]
     Route: 042
  3. REMERON [Concomitant]
     Route: 065
  4. PANTOPRAZOLE [Concomitant]
     Route: 065

REACTIONS (1)
  - DRUG RASH WITH EOSINOPHILIA AND SYSTEMIC SYMPTOMS [None]
